FAERS Safety Report 19937018 (Version 1)
Quarter: 2021Q4

REPORT INFORMATION
  Report Type: Spontaneous
  Country: US (occurrence: US)
  Receive Date: 20211009
  Receipt Date: 20211009
  Transmission Date: 20220303
  Serious: Yes (Death)
  Sender: FDA-Public Use
  Company Number: US-ROCHE-2931240

PATIENT
  Age: 76 Year
  Sex: Female

DRUGS (1)
  1. ESBRIET [Suspect]
     Active Substance: PIRFENIDONE
     Indication: Idiopathic pulmonary fibrosis
     Dosage: 1 TABLET TID FOR 7 DAYS, 2 TABLET TID FOR 7 DAYS THEN 3 TABLETS TID THEREAFTER
     Route: 048
     Dates: start: 202109, end: 20210916

REACTIONS (1)
  - Death [Fatal]

NARRATIVE: CASE EVENT DATE: 20210916
